FAERS Safety Report 9802399 (Version 2)
Quarter: 2014Q1

REPORT INFORMATION
  Report Type: Report from Study
  Country: DE (occurrence: DE)
  Receive Date: 20140107
  Receipt Date: 20140107
  Transmission Date: 20141002
  Serious: Yes (Hospitalization)
  Sender: FDA-Public Use
  Company Number: DE-BRISTOL-MYERS SQUIBB COMPANY-15532641

PATIENT
  Age: 36 Year
  Sex: Male

DRUGS (8)
  1. IPILIMUMAB [Suspect]
     Indication: MALIGNANT MELANOMA
     Dosage: 10MG/KG
     Route: 042
     Dates: start: 20100415
  2. PROPANOL [Concomitant]
     Dosage: 1-0-0
  3. IBUPROFEN [Concomitant]
  4. NOVALGIN [Concomitant]
     Dosage: 1DF=40 UNIT NOT GIVEN.
  5. VALORON [Concomitant]
     Dosage: 1DF=200 RETARD UNIT NOT GIVEN
  6. TAVEGIL [Concomitant]
     Dosage: TAB
  7. AVELOX [Concomitant]
  8. MONO-EMBOLEX [Concomitant]
     Route: 058

REACTIONS (1)
  - Pulmonary sarcoidosis [Recovered/Resolved with Sequelae]
